FAERS Safety Report 9354300 (Version 2)
Quarter: 2013Q3

REPORT INFORMATION
  Report Type: Spontaneous
  Country: ZA (occurrence: ZA)
  Receive Date: 20130618
  Receipt Date: 20130705
  Transmission Date: 20140515
  Serious: Yes (Hospitalization)
  Sender: FDA-Public Use
  Company Number: ZA-ABBOTT-13P-143-1102426-00

PATIENT
  Age: 16 Year
  Sex: Female

DRUGS (1)
  1. PROGESTERONE [Suspect]
     Indication: POLYCYSTIC OVARIES
     Route: 048
     Dates: start: 20130601

REACTIONS (7)
  - Chest discomfort [Recovered/Resolved]
  - Headache [Recovered/Resolved]
  - Tremor [Recovered/Resolved]
  - Myalgia [Recovered/Resolved]
  - Musculoskeletal stiffness [Recovered/Resolved]
  - Anxiety [Recovered/Resolved]
  - Dizziness [Recovered/Resolved]
